FAERS Safety Report 4476072-5 (Version None)
Quarter: 2004Q3

REPORT INFORMATION
  Report Type: 
  Country: None (occurrence: None)
  Receive Date: 20040923
  Receipt Date: 20040618
  Transmission Date: 20050211
  Serious: No
  Sender: FDA-Public Use
  Company Number: USA040670601

PATIENT
  Age: 47 Year
  Sex: Female

DRUGS (5)
  1. FORTEO [Suspect]
     Indication: OSTEOPOROSIS
     Dosage: 20 UG DAY
  2. PROTONIX [Concomitant]
  3. COPAXONE [Concomitant]
  4. VICODIN [Concomitant]
  5. ADVIL [Concomitant]

REACTIONS (5)
  - DIZZINESS [None]
  - HYPERKERATOSIS [None]
  - MUSCLE CRAMP [None]
  - PAIN EXACERBATED [None]
  - PAIN IN EXTREMITY [None]
